FAERS Safety Report 24186728 (Version 2)
Quarter: 2025Q1

REPORT INFORMATION
  Report Type: Other
  Country: US (occurrence: US)
  Receive Date: 20240808
  Receipt Date: 20250305
  Transmission Date: 20250409
  Serious: No
  Sender: APOTEX
  Company Number: US-APOTEX-2024AP008811

PATIENT
  Sex: Female

DRUGS (2)
  1. AMBRISENTAN [Suspect]
     Active Substance: AMBRISENTAN
     Indication: Product used for unknown indication
     Route: 065
  2. AMBRISENTAN [Suspect]
     Active Substance: AMBRISENTAN
     Route: 065
     Dates: end: 20250220

REACTIONS (4)
  - COVID-19 [Unknown]
  - Orbital swelling [Unknown]
  - Epistaxis [Unknown]
  - Headache [Unknown]
